FAERS Safety Report 8311188-4 (Version None)
Quarter: 2012Q2

REPORT INFORMATION
  Report Type: 
  Country: None (occurrence: None)
  Receive Date: 20120425
  Receipt Date: 20111017
  Transmission Date: 20120825
  Serious: No
  Sender: FDA-Public Use
  Company Number: US-MYLANLABS-2011S1013893

PATIENT
  Age: 75 Year
  Sex: Female
  Weight: 58.97 kg

DRUGS (2)
  1. NITROFURANTOIN MONOHYDRATE/MACROCRYSTALS [Suspect]
     Indication: URINARY TRACT INFECTION
     Route: 048
     Dates: start: 20110613, end: 20110617
  2. PREVACID [Concomitant]

REACTIONS (4)
  - DRUG INEFFECTIVE [None]
  - PRURITUS [None]
  - HYPERSENSITIVITY [None]
  - RASH [None]
